FAERS Safety Report 7893065-6 (Version None)
Quarter: 2011Q4

REPORT INFORMATION
  Report Type: 
  Country: None (occurrence: None)
  Receive Date: 20111104
  Receipt Date: 20111104
  Transmission Date: 20120403
  Serious: Yes (Hospitalization, Other)
  Sender: FDA-Public Use
  Company Number: FR-PFIZER INC-2011259894

PATIENT
  Age: 78 Year
  Sex: Male

DRUGS (10)
  1. METFORMIN HCL [Suspect]
     Dosage: 700 MG, 3X/DAY
     Route: 048
     Dates: start: 20090101
  2. INDAPAMIDE [Suspect]
     Dosage: 1 DF, 1X/DAY
     Route: 048
     Dates: start: 20090101
  3. CRESTOR [Suspect]
     Dosage: 10 MG, 1X/DAY
  4. CORDARONE [Suspect]
     Dosage: 200 MG, 1X/DAY
     Route: 048
     Dates: start: 20090101
  5. BISOPROLOL FUMARATE [Suspect]
     Dosage: 2 DF, 1X/DAY
     Route: 048
     Dates: start: 20090101
  6. CRESTOR [Suspect]
     Dosage: 5 MG, 1X/DAY
     Route: 048
     Dates: start: 20090101, end: 20111001
  7. PREVISCAN [Suspect]
     Dosage: 20 MG, 1X/DAY
     Route: 048
     Dates: start: 20090101
  8. ESCITALOPRAM OXALATE [Suspect]
     Dosage: 1 DF, 1X/DAY
     Route: 048
     Dates: start: 20090101
  9. DIAMICRON [Suspect]
     Dosage: 20 MG, 3X/DAY
     Route: 048
     Dates: start: 20090101
  10. AVODART [Suspect]
     Dosage: 0.5 MG, 1X/DAY
     Route: 048
     Dates: start: 20090101

REACTIONS (3)
  - VERTIGO [None]
  - DIZZINESS [None]
  - VESTIBULAR NEURONITIS [None]
